FAERS Safety Report 11086319 (Version 1)
Quarter: 2015Q2

REPORT INFORMATION
  Report Type: Report from Study
  Country: TW (occurrence: TW)
  Receive Date: 20150504
  Receipt Date: 20150504
  Transmission Date: 20150821
  Serious: Yes (Hospitalization)
  Sender: FDA-Public Use
  Company Number: TW-ROCHE-1570523

PATIENT
  Age: 76 Year
  Sex: Male

DRUGS (2)
  1. CAPECITABINE. [Suspect]
     Active Substance: CAPECITABINE
     Indication: ADENOCARCINOMA GASTRIC
     Route: 065
  2. OXALIPLATIN. [Suspect]
     Active Substance: OXALIPLATIN
     Indication: ADENOCARCINOMA GASTRIC
     Route: 065

REACTIONS (1)
  - Tumour haemorrhage [Recovered/Resolved]

NARRATIVE: CASE EVENT DATE: 20131122
